FAERS Safety Report 10067683 (Version 1)
Quarter: 2014Q2

REPORT INFORMATION
  Report Type: Spontaneous
  Country: US (occurrence: CA)
  Receive Date: 20140409
  Receipt Date: 20140409
  Transmission Date: 20141212
  Serious: Yes (Other)
  Sender: FDA-Public Use
  Company Number: US-RANBAXY-2014US-80044

PATIENT
  Age: 3 Year
  Sex: Female

DRUGS (2)
  1. CEPHALEXIN [Suspect]
     Indication: PRODUCT USED FOR UNKNOWN INDICATION
     Dosage: 1 G, DAILY
     Route: 048
  2. CEPHALEXIN [Suspect]
     Dosage: 750 MG, DAILY
     Route: 048

REACTIONS (1)
  - Mania [Not Recovered/Not Resolved]
